FAERS Safety Report 6235326-2 (Version None)
Quarter: 2009Q2

REPORT INFORMATION
  Report Type: 
  Country: None (occurrence: None)
  Receive Date: 20090615
  Receipt Date: 20090529
  Transmission Date: 20091009
  Serious: Yes (Hospitalization)
  Sender: FDA-Public Use
  Company Number: 2009001764

PATIENT
  Age: 60 Year
  Sex: Male

DRUGS (1)
  1. MACUGEN [Suspect]
     Indication: MACULAR DEGENERATION
     Dosage: (0.3 MG),INTRA-VITREAL
     Dates: start: 20090401

REACTIONS (1)
  - RETINAL HAEMORRHAGE [None]
